FAERS Safety Report 12393452 (Version 1)
Quarter: 2016Q2

REPORT INFORMATION
  Report Type: Spontaneous
  Country: US (occurrence: None)
  Receive Date: 20160520
  Receipt Date: 20160520
  Transmission Date: 20160815
  Serious: Yes (Disabling)
  Sender: FDA-Public Use
  Company Number: None

PATIENT
  Age: 58 Year
  Sex: Female
  Weight: 79.38 kg

DRUGS (7)
  1. ELAVIL [Suspect]
     Active Substance: AMITRIPTYLINE HYDROCHLORIDE
  2. GUAFINESEN [Concomitant]
  3. LISINOPRIL. [Concomitant]
     Active Substance: LISINOPRIL
  4. MORPHINE [Concomitant]
     Active Substance: MORPHINE
  5. SUPPLEMENTS [Concomitant]
     Active Substance: UNSPECIFIED INGREDIENT
  6. VITAMINS [Concomitant]
     Active Substance: VITAMINS
  7. METFORMIN [Suspect]
     Active Substance: METFORMIN HYDROCHLORIDE
     Indication: DIABETES MELLITUS
     Dates: start: 20110901, end: 20150915

REACTIONS (4)
  - Pain [None]
  - Depression [None]
  - Weight increased [None]
  - Irritable bowel syndrome [None]

NARRATIVE: CASE EVENT DATE: 20150531
